FAERS Safety Report 4991536-3 (Version None)
Quarter: 2006Q2

REPORT INFORMATION
  Report Type: 
  Country: None (occurrence: None)
  Receive Date: 20060502
  Receipt Date: 20060421
  Transmission Date: 20061013
  Serious: Yes (Other)
  Sender: FDA-Public Use
  Company Number: SUSI-2006-00432

PATIENT
  Sex: Male

DRUGS (1)
  1. ADDERALL XR 30 [Suspect]

REACTIONS (3)
  - MACULOPATHY [None]
  - RETINOPATHY [None]
  - VITREOUS FLOATERS [None]
